FAERS Safety Report 13102886 (Version 5)
Quarter: 2017Q3

REPORT INFORMATION
  Report Type: Report from Study
  Country: US (occurrence: US)
  Receive Date: 20170110
  Receipt Date: 20170803
  Transmission Date: 20171127
  Serious: Yes (Life-Threatening, Hospitalization)
  Sender: FDA-Public Use
  Company Number: US-ACTELION-A-NJ2016-146750

PATIENT
  Age: 11 Month
  Sex: Female

DRUGS (13)
  1. HYDROCORTISONE. [Concomitant]
     Active Substance: HYDROCORTISONE
  2. MULTIVITAMINS PLUS IRON [Concomitant]
  3. REMODULIN [Suspect]
     Active Substance: TREPROSTINIL
     Indication: PULMONARY ARTERIAL HYPERTENSION
     Dosage: 100 NG/KG, PER MIN
     Route: 058
     Dates: start: 20160809
  4. ALBUTEROL. [Concomitant]
     Active Substance: ALBUTEROL
  5. TRACLEER [Suspect]
     Active Substance: BOSENTAN
     Dosage: 30 MG, BID
     Route: 048
     Dates: start: 20161004
  6. SILDENAFIL. [Concomitant]
     Active Substance: SILDENAFIL
     Dosage: 17 MG, TID
  7. BUDESONIDE. [Concomitant]
     Active Substance: BUDESONIDE
  8. TRIAMCINOLONE [Concomitant]
     Active Substance: TRIAMCINOLONE
  9. TRACLEER [Suspect]
     Active Substance: BOSENTAN
     Indication: PULMONARY ARTERIAL HYPERTENSION
     Dosage: 31.25 MG, BID
     Route: 048
     Dates: start: 20161004
  10. FAMOTIDINE. [Concomitant]
     Active Substance: FAMOTIDINE
  11. LASIX [Suspect]
     Active Substance: FUROSEMIDE
     Indication: PRODUCT USED FOR UNKNOWN INDICATION
     Dosage: 10 MG, QOD (VIA GASTROSTOMY TUBE)
     Route: 048
  12. POTASSIUM [Concomitant]
     Active Substance: POTASSIUM
  13. LASIX [Suspect]
     Active Substance: FUROSEMIDE
     Dosage: 10 MG, QD (VIA GASTROSTOMY TUBE)
     Route: 048

REACTIONS (20)
  - Haemodynamic instability [Unknown]
  - Pneumonia bacterial [Recovered/Resolved]
  - Culture positive [Recovered/Resolved]
  - Acinetobacter test positive [Recovered/Resolved]
  - Pneumonia [Not Recovered/Not Resolved]
  - Dyspnoea [Recovering/Resolving]
  - Acute respiratory failure [Recovered/Resolved]
  - Tachycardia [Recovered/Resolved]
  - Gastrostomy [Not Recovered/Not Resolved]
  - Oxygen saturation decreased [Recovered/Resolved]
  - Pleural effusion [Recovered/Resolved]
  - Agitation [Unknown]
  - Drug dose omission [Unknown]
  - Dehydration [Unknown]
  - Nasopharyngitis [Recovering/Resolving]
  - Atelectasis [Recovered/Resolved]
  - White blood cell count increased [Recovered/Resolved]
  - Respiratory distress [Recovered/Resolved]
  - Pulmonary hypertension [Recovering/Resolving]
  - Stenotrophomonas test positive [Recovered/Resolved]

NARRATIVE: CASE EVENT DATE: 20161202
